FAERS Safety Report 11768561 (Version 3)
Quarter: 2015Q4

REPORT INFORMATION
  Report Type: Report from Study
  Country: JP (occurrence: JP)
  Receive Date: 20151123
  Receipt Date: 20151203
  Transmission Date: 20160304
  Serious: Yes (Hospitalization)
  Sender: FDA-Public Use
  Company Number: JP-JNJFOC-20151120991

PATIENT
  Age: 67 Year
  Sex: Female
  Weight: 78 kg

DRUGS (29)
  1. CANAGLU [Suspect]
     Active Substance: CANAGLIFLOZIN
     Indication: TYPE 2 DIABETES MELLITUS
     Route: 048
     Dates: start: 20150105, end: 20150426
  2. TAKELDA [Concomitant]
     Indication: ANGINA PECTORIS
     Dosage: START DATE: BEFORE INITIATION DAY OF TREATMENT PERIOD
     Route: 048
  3. NOVORAPID [Concomitant]
     Active Substance: INSULIN ASPART
     Dosage: 16 UNITS IN THE MORNING, 14 UNITS IN THE EVENING
     Route: 051
     Dates: start: 20150817
  4. NOVORAPID [Concomitant]
     Active Substance: INSULIN ASPART
     Dosage: 20 UNITS IN THE MORNING, 18 UNITS IN THE EVENING
     Route: 051
     Dates: start: 20150427
  5. MAGLAX [Concomitant]
     Active Substance: MAGNESIUM OXIDE
     Indication: CONSTIPATION
     Dosage: START DATE:BEFORE 16TH WEEK OF TREATMENT PERIOD
     Route: 048
  6. LIVALO [Concomitant]
     Active Substance: PITAVASTATIN CALCIUM
     Indication: DYSLIPIDAEMIA
     Route: 048
  7. NOVORAPID [Concomitant]
     Active Substance: INSULIN ASPART
     Dosage: 20 UNITS IN THE MORNING, 16 UNITS IN THE EVENING
     Route: 051
  8. PLAVIX [Concomitant]
     Active Substance: CLOPIDOGREL BISULFATE
     Indication: ANGINA PECTORIS
     Dosage: START DATE: BEFORE 16TH WEEK OF TREATMENT PERIOD
     Route: 048
  9. LIVALO [Concomitant]
     Active Substance: PITAVASTATIN CALCIUM
     Indication: DYSLIPIDAEMIA
     Dosage: START DATE: BEFORE INITIATION DAY OF TREATMENT PERIOD
     Route: 048
  10. BROTIZOLAM [Concomitant]
     Active Substance: BROTIZOLAM
     Indication: INSOMNIA
     Dosage: START DATE: BEFORE INITIATION DAY OF TREATMENT PERIOD
     Route: 048
  11. NOVORAPID [Concomitant]
     Active Substance: INSULIN ASPART
     Dosage: 18 UNITS IN THE MORNING, 16 UNITS IN THE EVENING
     Route: 051
     Dates: start: 20150907
  12. LAMISIL AT [Concomitant]
     Active Substance: TERBINAFINE HYDROCHLORIDE
     Indication: DERMATOPHYTOSIS OF NAIL
     Route: 048
     Dates: start: 20150202
  13. EPADEL-S [Concomitant]
     Active Substance: ICOSAPENT ETHYL
     Indication: DYSLIPIDAEMIA
     Dosage: START DATE: BEFORE 16TH WEEK OF TREATMENT PERIOD
     Route: 048
  14. PLAVIX [Concomitant]
     Active Substance: CLOPIDOGREL BISULFATE
     Indication: ANGINA PECTORIS
     Dosage: START DATE: BEFORE INITIATION DAY OF TREATMENT PERIOD
     Route: 048
  15. LOXONIN [Concomitant]
     Active Substance: LOXOPROFEN SODIUM
     Indication: OSTEOARTHRITIS
     Dosage: START DATE: BEFORE INITIATION DAY OF TREATMENT PERIOD
     Route: 061
  16. NOVORAPID [Concomitant]
     Active Substance: INSULIN ASPART
     Dosage: 15 UNITS IN THE MORNING, 13 UNITS IN THE EVENING
     Route: 051
     Dates: start: 20150722
  17. LAMISIL AT [Concomitant]
     Active Substance: TERBINAFINE HYDROCHLORIDE
     Indication: DERMATOPHYTOSIS OF NAIL
     Dosage: BEFORE 16TH WEEK OF TREATMENT PERIOD TO 16-AUG-2015
     Route: 048
     Dates: end: 20150816
  18. INFLUENZA VACCINE [Concomitant]
     Active Substance: INFLUENZA VIRUS VACCINE
     Indication: PROPHYLAXIS
     Route: 051
     Dates: start: 20151027, end: 20151027
  19. EPADEL-S [Concomitant]
     Active Substance: ICOSAPENT ETHYL
     Indication: DYSLIPIDAEMIA
     Dosage: START DATE: BEFORE INITIATION DAY OF TREATMENT PERIOD
     Route: 048
  20. TAKELDA [Concomitant]
     Indication: ANGINA PECTORIS
     Dosage: START DATE: BEFORE 16TH WEEK OF TREATMENT PERIOD
     Route: 048
  21. AMLODIN [Concomitant]
     Active Substance: AMLODIPINE BESYLATE
     Indication: HYPERTENSION
     Dosage: START DATE: BEFORE INITIATION DAY OF TREATMENT PERIOD
     Route: 048
  22. MAGLAX [Concomitant]
     Active Substance: MAGNESIUM OXIDE
     Indication: CONSTIPATION
     Route: 048
     Dates: start: 20150202
  23. BROTIZOLAM [Concomitant]
     Active Substance: BROTIZOLAM
     Indication: INSOMNIA
     Dosage: START DATE: BEFORE 16TH WEEK OF TREATMENT PERIOD
     Route: 048
  24. NOVORAPID [Concomitant]
     Active Substance: INSULIN ASPART
     Dosage: 15 UNITS IN THE MORNING, 13 UNITS IN THE EVENING
     Route: 051
     Dates: start: 20150719
  25. CANAGLU [Suspect]
     Active Substance: CANAGLIFLOZIN
     Indication: TYPE 2 DIABETES MELLITUS
     Route: 048
     Dates: start: 20150427
  26. AMLODIN [Concomitant]
     Active Substance: AMLODIPINE BESYLATE
     Indication: HYPERTENSION
     Route: 048
  27. FRANDOL [Concomitant]
     Active Substance: ISOSORBIDE DINITRATE
     Indication: ANGINA PECTORIS
     Dosage: START DATE: BEFORE INITIATION DAY OF TREATMENT PERIOD
     Route: 061
  28. FRANDOL [Concomitant]
     Active Substance: ISOSORBIDE DINITRATE
     Indication: ANGINA PECTORIS
     Dosage: START DATE: BEFORE 16TH WEEK OF TREATMENT PERIOD
     Route: 061
  29. NOVORAPID [Concomitant]
     Active Substance: INSULIN ASPART
     Dosage: 15 UNITS IN THE MORNING, 9 UNITS IN THE EVENING
     Route: 051
     Dates: start: 20150721

REACTIONS (7)
  - Upper respiratory tract inflammation [Recovered/Resolved]
  - Malaise [Recovered/Resolved]
  - Nasopharyngitis [Recovered/Resolved]
  - Chest pain [Recovered/Resolved]
  - Herpes zoster [Recovered/Resolved]
  - Decreased appetite [Recovered/Resolved]
  - Headache [Unknown]

NARRATIVE: CASE EVENT DATE: 20150328
